FAERS Safety Report 4726875-4 (Version None)
Quarter: 2005Q3

REPORT INFORMATION
  Report Type: 
  Country: None (occurrence: None)
  Receive Date: 20050726
  Receipt Date: 20050713
  Transmission Date: 20060218
  Serious: Yes (Hospitalization)
  Sender: FDA-Public Use
  Company Number: CNL-122241-NL

PATIENT
  Age: 33 Year
  Sex: Female

DRUGS (4)
  1. MENOTROPINS [Suspect]
     Dosage: DF
  2. CHORIONIC GONADOTROPIN [Suspect]
     Indication: OVULATION INDUCTION
     Dosage: 10000 IU; INTRAMUSCULAR
     Route: 030
  3. PROGESTERONE [Suspect]
     Dosage: 300 MG, VAGINAL
     Route: 067
  4. TRIPTORELIN [Concomitant]

REACTIONS (2)
  - DRUG EXPOSURE DURING PREGNANCY [None]
  - ECTOPIC PREGNANCY [None]
